FAERS Safety Report 4559832-1 (Version None)
Quarter: 2005Q1

REPORT INFORMATION
  Report Type: 
  Country: None (occurrence: None)
  Receive Date: 20050107
  Receipt Date: 20041006
  Transmission Date: 20050727
  Serious: Yes (Hospitalization)
  Sender: FDA-Public Use
  Company Number: 235070K04USA

PATIENT
  Age: 34 Year
  Sex: Female

DRUGS (9)
  1. REBIF [Suspect]
     Indication: MULTIPLE SCLEROSIS
     Dosage: 44 MCG, 3 IN 1 WEEKS
     Dates: start: 20021127
  2. BACLOFEN [Concomitant]
  3. NEURONTIN [Concomitant]
  4. CELEXA [Concomitant]
  5. DARVOCET [Concomitant]
  6. VALIUM [Concomitant]
  7. ZOCOR [Concomitant]
  8. ANTIVERT (MECLOZINE HYDROCHLORIDE) [Concomitant]
  9. PREVACID [Concomitant]

REACTIONS (12)
  - CONTUSION [None]
  - COORDINATION ABNORMAL [None]
  - DIPLOPIA [None]
  - DYSTONIA [None]
  - FEELING JITTERY [None]
  - INJECTION SITE ERYTHEMA [None]
  - INJECTION SITE REACTION [None]
  - MULTIPLE SCLEROSIS [None]
  - MULTIPLE SCLEROSIS RELAPSE [None]
  - MUSCLE SPASMS [None]
  - NERVOUSNESS [None]
  - PURPURA [None]
